FAERS Safety Report 5852517-0 (Version None)
Quarter: 2008Q3

REPORT INFORMATION
  Report Type: 
  Country: None (occurrence: None)
  Receive Date: 20080820
  Receipt Date: 20080820
  Transmission Date: 20090109
  Serious: Yes (Other)
  Sender: FDA-Public Use
  Company Number: None

PATIENT
  Age: 65 Year
  Sex: Female
  Weight: 99.7913 kg

DRUGS (1)
  1. CRESTOR [Suspect]
     Indication: HYPERLIPIDAEMIA
     Dosage: 5 MG ONCE A DAY PO
     Route: 048
     Dates: start: 20080616, end: 20080811

REACTIONS (2)
  - MUSCLE SPASMS [None]
  - MYALGIA [None]
